FAERS Safety Report 5636378-0 (Version None)
Quarter: 2008Q1

REPORT INFORMATION
  Report Type: 
  Country: None (occurrence: None)
  Receive Date: 20080225
  Receipt Date: 20071108
  Transmission Date: 20080703
  Serious: No
  Sender: FDA-Public Use
  Company Number: A0692969A

PATIENT
  Age: 38 Year
  Sex: Female

DRUGS (5)
  1. VERAMYST [Suspect]
     Dosage: 4SPR PER DAY
     Route: 045
     Dates: start: 20071103
  2. ASPIRIN [Concomitant]
  3. BENADRYL [Concomitant]
  4. YAZ [Concomitant]
  5. CLARITIN [Concomitant]

REACTIONS (1)
  - GASTROOESOPHAGEAL REFLUX DISEASE [None]
